FAERS Safety Report 4828262-7 (Version None)
Quarter: 2005Q4

REPORT INFORMATION
  Report Type: 
  Country: None (occurrence: None)
  Receive Date: 20051115
  Receipt Date: 20051021
  Transmission Date: 20060501
  Serious: Yes (Hospitalization)
  Sender: FDA-Public Use
  Company Number: JP-AVENTIS-200513093JP

PATIENT
  Age: 59 Year
  Sex: Male

DRUGS (12)
  1. TAXOTERE [Suspect]
     Indication: SALIVARY GLAND NEOPLASM
     Route: 041
     Dates: start: 20040514, end: 20040514
  2. TAXOTERE [Suspect]
     Route: 041
     Dates: start: 20040804, end: 20040804
  3. TAXOTERE [Suspect]
     Route: 041
     Dates: start: 20040915, end: 20040915
  4. TAXOTERE [Suspect]
     Route: 041
     Dates: start: 20041014, end: 20050901
  5. RADIATION THERAPY [Concomitant]
     Indication: SALIVARY GLAND NEOPLASM
     Dates: start: 20040204, end: 20040616
  6. RADIATION THERAPY [Concomitant]
     Dates: start: 20040705, end: 20040709
  7. AQUPLA [Concomitant]
     Indication: SALIVARY GLAND NEOPLASM
     Route: 041
     Dates: start: 20040514, end: 20040514
  8. AQUPLA [Concomitant]
     Route: 041
     Dates: start: 20040804, end: 20040804
  9. AQUPLA [Concomitant]
     Route: 041
     Dates: start: 20040915, end: 20040915
  10. FLUOROURACIL [Concomitant]
     Indication: SALIVARY GLAND NEOPLASM
     Route: 041
     Dates: start: 20040514, end: 20040518
  11. FLUOROURACIL [Concomitant]
     Route: 041
     Dates: start: 20040804, end: 20040808
  12. FLUOROURACIL [Concomitant]
     Route: 041
     Dates: start: 20040915, end: 20040919

REACTIONS (1)
  - PNEUMOTHORAX [None]
